FAERS Safety Report 18663845 (Version 3)
Quarter: 2021Q1

REPORT INFORMATION
  Report Type: Spontaneous
  Country: FR (occurrence: FR)
  Receive Date: 20201224
  Receipt Date: 20210106
  Transmission Date: 20210419
  Serious: Yes (Other)
  Sender: FDA-Public Use
  Company Number: FR-AUROBINDO-AUR-APL-2020-062730

PATIENT
  Age: 58 Year
  Sex: Male
  Weight: 84 kg

DRUGS (10)
  1. LINEZOLIDE KABI [Suspect]
     Active Substance: LINEZOLID
     Indication: C-REACTIVE PROTEIN INCREASED
     Dosage: 1200 MILLIGRAM, ONCE A DAY
     Route: 042
     Dates: start: 20200411, end: 20200418
  2. PIPERACILLIN TAZOBACTAM PA [Suspect]
     Active Substance: PIPERACILLIN SODIUM\TAZOBACTAM SODIUM
     Indication: C-REACTIVE PROTEIN INCREASED
     Dosage: 16 GRAM, ONCE A DAY
     Route: 042
     Dates: start: 20200411, end: 20200415
  3. VALACYCLOVIR [Suspect]
     Active Substance: VALACYCLOVIR HYDROCHLORIDE
     Indication: PRODUCT USED FOR UNKNOWN INDICATION
     Dosage: 1000 MILLIGRAM, ONCE A DAY
     Route: 048
     Dates: start: 20200415, end: 20200421
  4. CEFOTAXIME [Suspect]
     Active Substance: CEFOTAXIME SODIUM
     Indication: LUNG DISORDER
     Dosage: 3 GRAM, ONCE A DAY
     Route: 042
     Dates: start: 20200403, end: 20200410
  5. AMPHOTERICINE B [Concomitant]
     Active Substance: AMPHOTERICIN B
     Indication: PRODUCT USED FOR UNKNOWN INDICATION
     Dosage: 45 MILLILITER, ONCE A DAY
     Route: 048
     Dates: start: 20200415
  6. CANCIDAS [Suspect]
     Active Substance: CASPOFUNGIN ACETATE
     Indication: PRODUCT USED FOR UNKNOWN INDICATION
     Dosage: 70 MILLIGRAM, ONCE A DAY
     Route: 042
     Dates: start: 20200419, end: 20200421
  7. AZITHROMYCINE SANDOZ [AZITHROMYCIN] [Suspect]
     Active Substance: AZITHROMYCIN
     Indication: LUNG DISORDER
     Dosage: 500 MILLIGRAM, ONCE A DAY
     Route: 048
     Dates: start: 20200403, end: 20200408
  8. MEROPENEM ARROW 1000 MG POWDER FOR SOLUTION FOR INJECION OR INFUSION [Suspect]
     Active Substance: MEROPENEM
     Indication: PRODUCT USED FOR UNKNOWN INDICATION
     Dosage: 6 GRAM, ONCE A DAY
     Route: 042
     Dates: start: 20200415, end: 20200421
  9. ENOXAPARIN SODIUM. [Concomitant]
     Active Substance: ENOXAPARIN SODIUM
     Indication: PRODUCT USED FOR UNKNOWN INDICATION
     Dosage: UNK
     Route: 065
  10. PLAQUENIL [Concomitant]
     Active Substance: HYDROXYCHLOROQUINE SULFATE
     Indication: PRODUCT USED FOR UNKNOWN INDICATION
     Dosage: 200 MILLIGRAM
     Route: 048
     Dates: start: 20200404

REACTIONS (2)
  - Eosinophilia [Recovered/Resolved]
  - Rash maculo-papular [Recovered/Resolved]

NARRATIVE: CASE EVENT DATE: 20200415
